FAERS Safety Report 6100660-3 (Version None)
Quarter: 2009Q1

REPORT INFORMATION
  Report Type: 
  Country: None (occurrence: None)
  Receive Date: 20090303
  Receipt Date: 20090219
  Transmission Date: 20090719
  Serious: Yes (Congenital Anomaly)
  Sender: FDA-Public Use
  Company Number: AU-WYE-G03233309

PATIENT

DRUGS (1)
  1. EFFEXOR XR [Suspect]
     Dosage: 75MG DAILY
     Route: 064
     Dates: end: 20080101

REACTIONS (2)
  - BIRTH MARK [None]
  - DRUG EXPOSURE DURING PREGNANCY [None]
